FAERS Safety Report 7896596-8 (Version None)
Quarter: 2011Q4

REPORT INFORMATION
  Report Type: 
  Country: None (occurrence: None)
  Receive Date: 20111107
  Receipt Date: 20111026
  Transmission Date: 20120403
  Serious: Yes (Other)
  Sender: FDA-Public Use
  Company Number: DE-BIOGENIDEC-2011BI040994

PATIENT
  Age: 33 Year
  Sex: Female
  Weight: 78 kg

DRUGS (5)
  1. TYSABRI [Suspect]
     Indication: PRODUCT USED FOR UNKNOWN INDICATION
     Dates: start: 20110224, end: 20110527
  2. LEVOTHYROXINE SODIUM [Concomitant]
     Indication: HYPOTHYROIDISM
     Route: 048
  3. MIRTAZAPINE [Concomitant]
     Indication: DEPRESSED MOOD
     Route: 048
     Dates: start: 20110401
  4. LYRICA [Concomitant]
     Indication: PAIN
     Route: 048
     Dates: start: 20110401
  5. VIREAD [Concomitant]
     Indication: HEPATITIS B
     Route: 048

REACTIONS (3)
  - GAMMA-GLUTAMYLTRANSFERASE INCREASED [None]
  - ASPARTATE AMINOTRANSFERASE INCREASED [None]
  - ALANINE AMINOTRANSFERASE INCREASED [None]
